FAERS Safety Report 19058143 (Version 1)
Quarter: 2021Q1

REPORT INFORMATION
  Report Type: Spontaneous
  Country: US (occurrence: US)
  Receive Date: 20210324
  Receipt Date: 20210324
  Transmission Date: 20210420
  Serious: No
  Sender: FDA-Public Use
  Company Number: US-BAXTER-2021BAX005272

PATIENT
  Sex: Female

DRUGS (4)
  1. 10% DEXTROSE INJECTION, USP [Suspect]
     Active Substance: DEXTROSE
     Dosage: DOSE RE?INTRODUCED
     Route: 042
  2. 10% DEXTROSE INJECTION, USP [Suspect]
     Active Substance: DEXTROSE
     Dosage: UNKNOWN DATE 6 WEEKS AGO, OVER 7 HOURS FOR 3 TIMES A WEEK.
     Route: 042
  3. 10% DEXTROSE INJECTION, USP [Suspect]
     Active Substance: DEXTROSE
     Dosage: UNKNOWN DATE OVER 2 YEARS AGO (OVER THE LAST YEAR) FOR OVER 8 HOURS THREE TIMES WEEKLY
     Route: 042
  4. 10% DEXTROSE INJECTION, USP [Suspect]
     Active Substance: DEXTROSE
     Indication: PORPHYRIA
     Dosage: UNKNOWN DATE, MANY YEARS AGO VIA UNKNOWN FREQUENCY
     Route: 042

REACTIONS (2)
  - Therapy non-responder [Unknown]
  - Urine odour abnormal [Recovered/Resolved]

NARRATIVE: CASE EVENT DATE: 20210311
